FAERS Safety Report 9897910 (Version 1)
Quarter: 2014Q1

REPORT INFORMATION
  Report Type: Spontaneous
  Country: US (occurrence: US)
  Receive Date: 20140214
  Receipt Date: 20140214
  Transmission Date: 20141002
  Serious: No
  Sender: FDA-Public Use
  Company Number: US-PFIZER INC-2014043520

PATIENT
  Age: 51 Year
  Sex: Female
  Weight: 68 kg

DRUGS (6)
  1. CHANTIX [Suspect]
     Indication: SMOKING CESSATION THERAPY
     Dosage: 0.5 MG, 1X/DAY
     Route: 048
  2. CHANTIX [Suspect]
     Dosage: UNK
     Route: 048
  3. SYMBICORT [Concomitant]
     Indication: ASTHMA
     Dosage: UNK, 2X/DAY
  4. SPIRIVA [Concomitant]
     Indication: ASTHMA
     Dosage: UNK
  5. SINGULAIR [Concomitant]
     Indication: ASTHMA
     Dosage: UNK
  6. PROAIR [Concomitant]
     Dosage: UNK, AS NEEDED

REACTIONS (2)
  - Nausea [Unknown]
  - Abnormal dreams [Unknown]
